FAERS Safety Report 8571378-2 (Version None)
Quarter: 2012Q3

REPORT INFORMATION
  Report Type: 
  Country: None (occurrence: None)
  Receive Date: 20120806
  Receipt Date: 20120802
  Transmission Date: 20120928
  Serious: Yes (Death)
  Sender: FDA-Public Use
  Company Number: DK-JNJFOC-20120801321

PATIENT

DRUGS (23)
  1. DOXORUBICIN HCL [Suspect]
     Dosage: ON DAY 1
     Route: 042
  2. CYCLOPHOSPHAMIDE [Suspect]
     Dosage: ON DAY 1
     Route: 065
  3. VINCRISTINE [Suspect]
     Indication: MANTLE CELL LYMPHOMA
     Dosage: ON DAY 1
     Route: 065
  4. PREDNISOLONE [Suspect]
     Dosage: ON DAY 1-5
     Route: 065
  5. ETOPOSIDE [Suspect]
     Indication: MANTLE CELL LYMPHOMA
     Dosage: ON DAY 2-5
     Route: 065
  6. CYCLOPHOSPHAMIDE [Suspect]
     Indication: MANTLE CELL LYMPHOMA
     Dosage: ON DAY 1
     Route: 065
  7. PREDNISOLONE [Suspect]
     Dosage: ON DAY 1-5
     Route: 065
  8. RITUXIMAB [Suspect]
     Dosage: GIVEN ON DAY 1 FROM CYCLE 4 AND IN CYCLE 6 ON DAY 9
     Route: 065
  9. VINCRISTINE [Suspect]
     Dosage: ON DAY 1
     Route: 065
  10. RITUXIMAB [Suspect]
     Indication: MANTLE CELL LYMPHOMA
     Dosage: GIVEN ON DAY 1 FROM CYCLE 4 AND IN CYCLE 6 ON DAY 9
     Route: 065
  11. CYTARABINE [Suspect]
     Dosage: 3 OR 2 G/M2, 3 HOUR INFUSION
     Route: 042
  12. DOXORUBICIN HCL [Suspect]
     Indication: MANTLE CELL LYMPHOMA
     Dosage: ON DAY 1
     Route: 042
  13. RITUXIMAB [Suspect]
     Dosage: GIVEN ON DAY 1 FROM CYCLE 4 AND IN CYCLE 6 ON DAY 9
     Route: 065
  14. CYTARABINE [Suspect]
     Dosage: ON DAYS 2-5
     Route: 042
  15. VINCRISTINE [Suspect]
     Dosage: ON DAY 1
     Route: 065
  16. CARMUSTINE [Suspect]
     Indication: MANTLE CELL LYMPHOMA
     Dosage: ON DAY 1
     Route: 065
  17. MELPHALAN HYDROCHLORIDE [Suspect]
     Indication: MANTLE CELL LYMPHOMA
     Dosage: ON DAY 6
     Route: 065
  18. CYCLOPHOSPHAMIDE [Suspect]
     Dosage: ON DAY 2-5
     Route: 065
  19. CYCLOPHOSPHAMIDE [Suspect]
     Dosage: ON DAY 1
     Route: 065
  20. PREDNISOLONE [Suspect]
     Indication: MANTLE CELL LYMPHOMA
     Dosage: ON DAY 1-5
     Route: 065
  21. CYTARABINE [Suspect]
     Indication: MANTLE CELL LYMPHOMA
     Dosage: 3 OR 2 G/M2, 3 HOUR INFUSION
     Route: 042
  22. DOXORUBICIN HCL [Suspect]
     Dosage: ON DAY 1
     Route: 042
  23. CYTARABINE [Suspect]
     Dosage: 3 OR 2 G/M2, 3 HOUR INFUSION
     Route: 042

REACTIONS (1)
  - CARDIAC FAILURE [None]
